FAERS Safety Report 8124409 (Version 3)
Quarter: 2013Q1

REPORT INFORMATION
  Report Type: Spontaneous
  Country: US (occurrence: US)
  Receive Date: 20110907
  Receipt Date: 20130315
  Transmission Date: 20140127
  Serious: Yes (Hospitalization)
  Sender: FDA-Public Use
  Company Number: US-GLAXOSMITHKLINE-A0896872A

PATIENT
  Age: 54 Year
  Sex: Female
  Weight: 118.2 kg

DRUGS (2)
  1. AVANDIA [Suspect]
     Indication: TYPE 2 DIABETES MELLITUS
     Dosage: 4MG PER DAY
     Route: 048
     Dates: start: 20040831, end: 200609
  2. MOTRIN [Concomitant]
     Indication: OSTEOARTHRITIS

REACTIONS (2)
  - Myocardial infarction [Not Recovered/Not Resolved]
  - Arteriosclerosis [Unknown]
